FAERS Safety Report 7711409-2 (Version None)
Quarter: 2011Q3

REPORT INFORMATION
  Report Type: 
  Country: None (occurrence: None)
  Receive Date: 20110826
  Receipt Date: 20110822
  Transmission Date: 20111222
  Serious: Yes (Hospitalization)
  Sender: FDA-Public Use
  Company Number: ZA-ABBOTT-11P-143-0847027-00

PATIENT
  Sex: Male
  Weight: 114 kg

DRUGS (4)
  1. ARCOXIA [Concomitant]
     Indication: PAIN
     Route: 048
     Dates: start: 20090301
  2. HUMIRA [Suspect]
     Indication: ANKYLOSING SPONDYLITIS
     Route: 058
     Dates: start: 20110629, end: 20110713
  3. ARCOXIA [Concomitant]
     Indication: INFLAMMATION
  4. HUMIRA [Suspect]
     Dates: start: 20110815

REACTIONS (3)
  - HERNIA [None]
  - ANKYLOSING SPONDYLITIS [None]
  - GASTROINTESTINAL ULCER PERFORATION [None]
